FAERS Safety Report 25466235 (Version 1)
Quarter: 2025Q2

REPORT INFORMATION
  Report Type: Spontaneous
  Country: US (occurrence: US)
  Receive Date: 20250623
  Receipt Date: 20250623
  Transmission Date: 20250716
  Serious: Yes (Other)
  Sender: LUPIN
  Company Number: US-LUPIN PHARMACEUTICALS INC.-2025-04966

PATIENT
  Age: 16 Month

DRUGS (10)
  1. BUPROPION [Suspect]
     Active Substance: BUPROPION
     Indication: Major depression
     Dosage: 300 MG, QD
  2. BUPROPION [Suspect]
     Active Substance: BUPROPION
     Dosage: 450 MG, QD (TITRATED
  3. LITHIUM [Suspect]
     Active Substance: LITHIUM
     Indication: Major depression
     Dosage: 750 MG, QD
  4. LITHIUM [Suspect]
     Active Substance: LITHIUM
     Dosage: 600 MG IN THE MORNING AND 900 MG AT NIGHT , BID
  5. PRAZOSIN [Suspect]
     Active Substance: PRAZOSIN
     Indication: Nightmare
     Dosage: 5 MG, QD AT BEDTIME
  6. PRAZOSIN [Suspect]
     Active Substance: PRAZOSIN
     Indication: Major depression
  7. KETAMINE [Suspect]
     Active Substance: KETAMINE
     Indication: Major depression
  8. ESKETAMINE [Suspect]
     Active Substance: ESKETAMINE
     Indication: Major depression
  9. FLUOXETINE [Suspect]
     Active Substance: FLUOXETINE HYDROCHLORIDE
     Indication: Major depression
  10. FLUOXETINE [Suspect]
     Active Substance: FLUOXETINE HYDROCHLORIDE
     Dosage: 40 MG, QD (TITRATED)

REACTIONS (3)
  - Foetal exposure during pregnancy [Unknown]
  - Gross motor delay [Unknown]
  - Speech disorder developmental [Unknown]
